FAERS Safety Report 16127100 (Version 1)
Quarter: 2019Q1

REPORT INFORMATION
  Report Type: Spontaneous
  Country: FR (occurrence: FR)
  Receive Date: 20190328
  Receipt Date: 20190328
  Transmission Date: 20190418
  Serious: Yes (Other)
  Sender: FDA-Public Use
  Company Number: FR-SA-2019SA084405

PATIENT
  Age: 57 Year
  Sex: Female

DRUGS (3)
  1. INNOHEP [Concomitant]
     Active Substance: TINZAPARIN SODIUM
     Indication: THROMBOCYTOPENIA
     Dosage: UNK
     Route: 058
     Dates: start: 20170105
  2. TARGOCID [Suspect]
     Active Substance: TEICOPLANIN
     Indication: INTERVERTEBRAL DISCITIS
     Dosage: 400 MG, QD
     Route: 058
     Dates: start: 20170120
  3. RIFADINE [Suspect]
     Active Substance: RIFAMPIN
     Indication: INTERVERTEBRAL DISCITIS
     Dosage: 600 MG, QD
     Route: 048
     Dates: start: 20170112

REACTIONS (2)
  - Thrombocytopenia [Not Recovered/Not Resolved]
  - Leukaemia [Not Recovered/Not Resolved]

NARRATIVE: CASE EVENT DATE: 20170207
